FAERS Safety Report 18363775 (Version 1)
Quarter: 2020Q4

REPORT INFORMATION
  Report Type: Spontaneous
  Country: CN (occurrence: CN)
  Receive Date: 20201009
  Receipt Date: 20201009
  Transmission Date: 20210114
  Serious: Yes (Other)
  Sender: FDA-Public Use
  Company Number: CN-JNJFOC-20201006106

PATIENT
  Age: 63 Year
  Sex: Female
  Weight: 70 kg

DRUGS (1)
  1. XARELTO [Suspect]
     Active Substance: RIVAROXABAN
     Indication: DEEP VEIN THROMBOSIS
     Dosage: 20 MG, QD
     Route: 048
     Dates: start: 20200920, end: 20200923

REACTIONS (2)
  - Incorrect dose administered [Unknown]
  - Coagulation test abnormal [Unknown]

NARRATIVE: CASE EVENT DATE: 20200920
